FAERS Safety Report 7313487-1 (Version None)
Quarter: 2011Q1

REPORT INFORMATION
  Report Type: 
  Country: None (occurrence: None)
  Receive Date: 20110225
  Receipt Date: 20110215
  Transmission Date: 20110831
  Serious: No
  Sender: FDA-Public Use
  Company Number: US-PFIZER INC-2010167168

PATIENT

DRUGS (1)
  1. ARTHROTEC [Suspect]

REACTIONS (3)
  - PAIN [None]
  - MALAISE [None]
  - ABDOMINAL PAIN UPPER [None]
